FAERS Safety Report 9520047 (Version 6)
Quarter: 2016Q3

REPORT INFORMATION
  Report Type: Spontaneous
  Country: US (occurrence: US)
  Receive Date: 20130912
  Receipt Date: 20160915
  Transmission Date: 20161109
  Serious: Yes (Death, Hospitalization, Disabling, Other)
  Sender: FDA-Public Use
  Company Number: US-009507513-1309USA003667

PATIENT
  Sex: Female
  Weight: 59.86 kg

DRUGS (4)
  1. ALENDRONATE SODIUM. [Suspect]
     Active Substance: ALENDRONATE SODIUM
     Indication: OSTEOPOROSIS
     Dosage: 70 MG, QW
     Route: 048
     Dates: start: 200909, end: 201005
  2. ALENDRONATE SODIUM. [Suspect]
     Active Substance: ALENDRONATE SODIUM
     Indication: OSTEOPOROSIS
     Dosage: 70 MG, QW
     Route: 048
     Dates: start: 200803, end: 200807
  3. FOSAMAX [Suspect]
     Active Substance: ALENDRONATE SODIUM
     Indication: OSTEOPOROSIS
     Dosage: 70 MG, QW
     Route: 048
     Dates: start: 2002, end: 200803
  4. ALENDRONATE SODIUM. [Suspect]
     Active Substance: ALENDRONATE SODIUM
     Indication: OSTEOPOROSIS
     Dosage: 70 MG, QW
     Route: 048
     Dates: start: 201005, end: 201101

REACTIONS (23)
  - Small cell lung cancer metastatic [Fatal]
  - Bursa disorder [Recovered/Resolved]
  - Osteoarthritis [Unknown]
  - Supraventricular extrasystoles [Unknown]
  - Lumbosacral radiculopathy [Unknown]
  - Arthralgia [Unknown]
  - Hypertonic bladder [Unknown]
  - Complication associated with device [Recovered/Resolved]
  - Chest pain [Unknown]
  - Lymphoma [Unknown]
  - Femur fracture [Recovered/Resolved]
  - Post procedural infection [Unknown]
  - Arthropathy [Unknown]
  - Back pain [Unknown]
  - Fall [Unknown]
  - Low turnover osteopathy [Unknown]
  - Blood cholesterol increased [Unknown]
  - Skin ulcer [Unknown]
  - Type V hyperlipidaemia [Unknown]
  - Hepatic cancer [Unknown]
  - Spinal disorder [Unknown]
  - Blood glucose abnormal [Unknown]
  - Sciatica [Unknown]

NARRATIVE: CASE EVENT DATE: 2007
